FAERS Safety Report 11044356 (Version 1)
Quarter: 2015Q2

REPORT INFORMATION
  Report Type: Spontaneous
  Country: IE (occurrence: None)
  Receive Date: 20150415
  Receipt Date: 20150415
  Transmission Date: 20150821
  Serious: Yes (Hospitalization)
  Sender: FDA-Public Use
  Company Number: 2015FE01104

PATIENT

DRUGS (2)
  1. DESMOPRESSIN (DESMOPRESSIN) [Suspect]
     Active Substance: DESMOPRESSIN
     Indication: DIABETES INSIPIDUS
  2. HYDROCORTISONE (UNKNOWN) [Suspect]
     Active Substance: HYDROCORTISONE
     Indication: PRODUCT USED FOR UNKNOWN INDICATION

REACTIONS (7)
  - Vomiting [None]
  - Hyponatraemia [None]
  - Treatment noncompliance [None]
  - Abdominal pain [None]
  - Sepsis [None]
  - Inappropriate schedule of drug administration [None]
  - Decreased appetite [None]
